FAERS Safety Report 4358628-3 (Version None)
Quarter: 2004Q2

REPORT INFORMATION
  Report Type: 
  Country: None (occurrence: None)
  Receive Date: 20040514
  Receipt Date: 20040514
  Transmission Date: 20050107
  Serious: Yes (Hospitalization)
  Sender: FDA-Public Use
  Company Number: None

PATIENT
  Age: 60 Year

DRUGS (2)
  1. SPIRONOLACTONE [Suspect]
     Indication: HYPERTENSION
     Dosage: 100MG DAILY ORAL
     Route: 048
     Dates: start: 20031023, end: 20031025
  2. RAMIPRIL [Suspect]
     Dosage: 20 MG DAILY ORAL
     Route: 048

REACTIONS (2)
  - FALL [None]
  - HEAD INJURY [None]
